FAERS Safety Report 10108470 (Version 3)
Quarter: 2014Q3

REPORT INFORMATION
  Report Type: Spontaneous
  Country: IT (occurrence: IT)
  Receive Date: 20140425
  Receipt Date: 20140724
  Transmission Date: 20150326
  Serious: Yes (Hospitalization)
  Sender: FDA-Public Use
  Company Number: IT-009507513-1404ITA011942

PATIENT
  Age: 67 Year
  Sex: Female

DRUGS (3)
  1. SINEMET [Suspect]
     Active Substance: CARBIDOPA\LEVODOPA
     Dosage: UNK
     Route: 048
     Dates: start: 20140101, end: 20140305
  2. LAROXYL [Suspect]
     Active Substance: AMITRIPTYLINE
     Dosage: ORAL DROP
     Dates: start: 20140101, end: 20140305
  3. CARBOLITHIUM [Suspect]
     Active Substance: LITHIUM CARBONATE
     Dosage: UNK
     Dates: start: 20140101, end: 20140305

REACTIONS (2)
  - Psychomotor skills impaired [Unknown]
  - Speech disorder [Unknown]

NARRATIVE: CASE EVENT DATE: 20140305
